FAERS Safety Report 6855358-0 (Version None)
Quarter: 2010Q3

REPORT INFORMATION
  Report Type: 
  Country: None (occurrence: None)
  Receive Date: 20100719
  Receipt Date: 20100709
  Transmission Date: 20110219
  Serious: No
  Sender: FDA-Public Use
  Company Number: US-BIOGENIDEC-2010BI023699

PATIENT
  Age: 24 Year
  Sex: Female

DRUGS (3)
  1. TYSABRI [Suspect]
     Indication: MULTIPLE SCLEROSIS
     Route: 042
     Dates: start: 20070522, end: 20071112
  2. TYSABRI [Suspect]
     Route: 042
     Dates: start: 20080311, end: 20090605
  3. TYSABRI [Suspect]
     Route: 042
     Dates: start: 20100416

REACTIONS (2)
  - BALANCE DISORDER [None]
  - MEMORY IMPAIRMENT [None]
